FAERS Safety Report 9450565 (Version 1)
Quarter: 2013Q3

REPORT INFORMATION
  Report Type: Spontaneous
  Country: US (occurrence: US)
  Receive Date: 20130809
  Receipt Date: 20130809
  Transmission Date: 20140515
  Serious: Yes (Death)
  Sender: FDA-Public Use
  Company Number: US-GLAXOSMITHKLINE-A1036915A

PATIENT
  Age: 49 Year
  Sex: Male

DRUGS (4)
  1. FLOLAN [Suspect]
     Indication: PULMONARY ARTERIAL HYPERTENSION
     Dosage: 42NGKM CONTINUOUS
     Route: 042
     Dates: start: 20130502
  2. TRACLEER [Concomitant]
  3. REVATIO [Concomitant]
  4. COUMADIN [Concomitant]

REACTIONS (1)
  - Death [Fatal]
